FAERS Safety Report 6357790-0 (Version None)
Quarter: 2009Q3

REPORT INFORMATION
  Report Type: 
  Country: None (occurrence: None)
  Receive Date: 20090911
  Receipt Date: 20090904
  Transmission Date: 20100115
  Serious: Yes (Death)
  Sender: FDA-Public Use
  Company Number: 09KR003566

PATIENT
  Sex: Male

DRUGS (4)
  1. DOXYLAMINE SUCCINATE [Suspect]
     Indication: INSOMNIA
     Dosage: ORAL
     Route: 048
     Dates: start: 20060723, end: 20060723
  2. DOXYLAMINE SUCCINATE [Suspect]
     Indication: POISONING
     Dosage: ORAL
     Route: 048
     Dates: start: 20060723, end: 20060723
  3. ZOLPIDEM TARTRATE [Concomitant]
  4. DANDELION JUICE [Concomitant]

REACTIONS (3)
  - LOSS OF CONSCIOUSNESS [None]
  - POISONING DELIBERATE [None]
  - VICTIM OF HOMICIDE [None]
